FAERS Safety Report 12503705 (Version 1)
Quarter: 2016Q2

REPORT INFORMATION
  Report Type: Spontaneous
  Country: US (occurrence: None)
  Receive Date: 20160627
  Receipt Date: 20160627
  Transmission Date: 20160815
  Serious: Yes (Other)
  Sender: FDA-Public Use
  Company Number: None

PATIENT
  Age: 45 Year
  Sex: Male
  Weight: 87.09 kg

DRUGS (1)
  1. CELECOXIB, 200 MG [Suspect]
     Active Substance: CELECOXIB
     Route: 048
     Dates: start: 20160623, end: 20160623

REACTIONS (6)
  - Dizziness [None]
  - Vision blurred [None]
  - Pharyngeal oedema [None]
  - Hypoaesthesia [None]
  - Nausea [None]
  - Dyspnoea [None]

NARRATIVE: CASE EVENT DATE: 20160623
